FAERS Safety Report 15543188 (Version 8)
Quarter: 2020Q1

REPORT INFORMATION
  Report Type: Spontaneous
  Country: US (occurrence: US)
  Receive Date: 20181023
  Receipt Date: 20200210
  Transmission Date: 20200409
  Serious: Yes (Hospitalization, Other)
  Sender: FDA-Public Use
  Company Number: US-PFIZER INC-2017514403

PATIENT
  Age: 70 Year
  Sex: Female
  Weight: 47.75 kg

DRUGS (16)
  1. REVATIO [Suspect]
     Active Substance: SILDENAFIL CITRATE
     Dosage: 3 DF, 3X/DAY
  2. PROVENTIL [Concomitant]
     Active Substance: ALBUTEROL
     Indication: WHEEZING
     Dosage: 3 ML, AS NEEDED (BY NEBULIZATION EVERY 4 HOURS)
     Dates: start: 2012
  3. FLAXSEED [Concomitant]
     Active Substance: FLAX SEED
     Dosage: UNK
     Route: 048
     Dates: start: 201010
  4. SINGULAIR [Concomitant]
     Active Substance: MONTELUKAST SODIUM
     Dosage: 10 MG, 1X/DAY
     Route: 048
     Dates: start: 20190403
  5. SYMBICORT [Concomitant]
     Active Substance: BUDESONIDE\FORMOTEROL FUMARATE DIHYDRATE
     Dosage: 2 DF, 2X/DAY (2 PUFFS INTO THE LUNGS)
     Route: 055
     Dates: start: 201706
  6. XOPENEX HFA [Concomitant]
     Active Substance: LEVALBUTEROL TARTRATE
     Indication: WHEEZING
     Dosage: 90 UG, AS NEEDED (2 PUFFS INTO THE LUNGS EVERY 6 HOURS)
     Route: 055
     Dates: start: 20190403
  7. REVATIO [Suspect]
     Active Substance: SILDENAFIL CITRATE
     Indication: PULMONARY HYPERTENSION
     Dosage: 20 MG, 3X/DAY
     Route: 048
     Dates: start: 20171122
  8. REVATIO [Suspect]
     Active Substance: SILDENAFIL CITRATE
     Dosage: 60 MG, 3X/DAY (20 MG 3 TABLETS 3 TIMES A DAY)
  9. REVATIO [Suspect]
     Active Substance: SILDENAFIL CITRATE
     Dosage: 20 MG, 3X/DAY
  10. NEXIUM [Concomitant]
     Active Substance: ESOMEPRAZOLE MAGNESIUM
     Dosage: 40 MG, DAILY
     Route: 048
     Dates: start: 201201
  11. FLONASE [Concomitant]
     Active Substance: FLUTICASONE PROPIONATE
     Dosage: 100 UG, 1X/DAY
     Route: 045
     Dates: start: 2012
  12. LASIX [Concomitant]
     Active Substance: FUROSEMIDE
     Dosage: 40 MG, DAILY
     Route: 048
  13. DELTASONE [Concomitant]
     Active Substance: PREDNISONE
     Dosage: 10 MG, DAILY
     Dates: start: 20190403
  14. BIOTIN [Concomitant]
     Active Substance: BIOTIN
     Dosage: UNK
     Dates: start: 2012
  15. REVATIO [Suspect]
     Active Substance: SILDENAFIL CITRATE
     Indication: PULMONARY SARCOIDOSIS
     Dosage: UNK
     Dates: start: 2018, end: 201806
  16. PLAQUENIL [Concomitant]
     Active Substance: HYDROXYCHLOROQUINE SULFATE
     Dosage: 200 MG, 2X/DAY
     Route: 048

REACTIONS (10)
  - Mobility decreased [Recovered/Resolved]
  - Asthenia [Recovered/Resolved]
  - Fatigue [Recovered/Resolved]
  - Respiratory tract infection [Recovered/Resolved]
  - Chest discomfort [Recovered/Resolved]
  - Pneumonia [Recovered/Resolved]
  - Malaise [Recovered/Resolved]
  - Dysphonia [Recovered/Resolved]
  - Cough [Recovered/Resolved]
  - Overdose [Unknown]

NARRATIVE: CASE EVENT DATE: 20190402
